FAERS Safety Report 12622072 (Version 1)
Quarter: 2016Q3

REPORT INFORMATION
  Report Type: Spontaneous
  Country: US (occurrence: US)
  Receive Date: 20160804
  Receipt Date: 20160804
  Transmission Date: 20161109
  Serious: No
  Sender: FDA-Public Use
  Company Number: US-ANACOR-2016ANA00150

PATIENT
  Age: 64 Year
  Sex: Female
  Weight: 113.38 kg

DRUGS (3)
  1. UNSPECIFIED MEDICATIONS [Concomitant]
     Active Substance: UNSPECIFIED INGREDIENT
  2. KERYDIN [Suspect]
     Active Substance: TAVABOROLE
     Indication: FUNGAL INFECTION
     Dosage: UNK UNK, 1X/DAY
     Route: 061
     Dates: start: 201512, end: 2016
  3. KERYDIN [Suspect]
     Active Substance: TAVABOROLE
     Dosage: UNK UNK, 1X/DAY
     Route: 061
     Dates: start: 2016, end: 201603

REACTIONS (3)
  - Application site hypersensitivity [Recovered/Resolved]
  - Application site erythema [Recovered/Resolved]
  - Application site pain [Recovered/Resolved]

NARRATIVE: CASE EVENT DATE: 201512
